FAERS Safety Report 5921015-8 (Version None)
Quarter: 2008Q4

REPORT INFORMATION
  Report Type: 
  Country: None (occurrence: None)
  Receive Date: 20081016
  Receipt Date: 20081009
  Transmission Date: 20090506
  Serious: Yes (Hospitalization)
  Sender: FDA-Public Use
  Company Number: US-PFIZER INC-2008057328

PATIENT
  Sex: Female
  Weight: 86 kg

DRUGS (5)
  1. CELEBREX [Suspect]
     Indication: ARTHRITIS
     Route: 048
     Dates: start: 20080603, end: 20080604
  2. CELEBREX [Suspect]
     Indication: MENISCUS LESION
  3. INSULIN [Concomitant]
  4. NOVOLOG [Concomitant]
  5. LANTUS [Concomitant]

REACTIONS (2)
  - MALAISE [None]
  - THROAT TIGHTNESS [None]
